FAERS Safety Report 7524423-7 (Version None)
Quarter: 2011Q2

REPORT INFORMATION
  Report Type: 
  Country: None (occurrence: None)
  Receive Date: 20110606
  Receipt Date: 20110531
  Transmission Date: 20111010
  Serious: Yes (Death, Hospitalization, Other)
  Sender: FDA-Public Use
  Company Number: PHHY2011BR47537

PATIENT
  Sex: Female

DRUGS (5)
  1. LEXOTAN [Concomitant]
     Dosage: 3 MG, 2 OR 3 TABLETS A DAY
     Route: 048
  2. CLONAZEPAM [Concomitant]
     Indication: SLEEP DISORDER
     Dosage: 20 DROPS A DAY
     Route: 048
  3. LEXOTAN [Concomitant]
     Dosage: 06MG, ? TABLET WHEN IT WAS NECESSARY
     Route: 048
  4. DIOVAN [Suspect]
     Indication: HYPERTENSION
     Dosage: 320 MG, 2 TABLETS A DAY
     Route: 048
  5. DIOVAN [Suspect]
     Dosage: 320MG, 1 TABLET A DAY
     Route: 048

REACTIONS (3)
  - GASTROINTESTINAL CARCINOMA [None]
  - OVARIAN CANCER METASTATIC [None]
  - DYSURIA [None]
